FAERS Safety Report 6328815-3 (Version None)
Quarter: 2009Q3

REPORT INFORMATION
  Report Type: 
  Country: None (occurrence: None)
  Receive Date: 20090826
  Receipt Date: 20090818
  Transmission Date: 20100115
  Serious: Yes (Disabling)
  Sender: FDA-Public Use
  Company Number: JP-BRISTOL-MYERS SQUIBB COMPANY-14488852

PATIENT
  Age: 46 Year
  Sex: Male

DRUGS (6)
  1. ERBITUX [Suspect]
     Indication: RECTAL CANCER
     Dosage: 2ND INF:26NOV08(500MG/BODY)1HR 3RD:07JAN09(500MG/BODY)1HR 4TH:25FEB09:400MG 5TH:08MAY09-ONG 300MG
     Route: 042
     Dates: start: 20081119, end: 20081119
  2. IRINOTECAN HCL [Concomitant]
     Indication: COLORECTAL CANCER RECURRENT
     Route: 042
     Dates: start: 20081119
  3. FAMOTIDINE [Concomitant]
     Indication: PREMEDICATION
     Route: 042
     Dates: start: 20081119
  4. POLARAMINE [Concomitant]
     Indication: PREMEDICATION
     Route: 042
     Dates: start: 20081119
  5. DECADRON [Concomitant]
     Indication: PREMEDICATION
     Route: 042
     Dates: start: 20081119
  6. KYTRIL [Concomitant]
     Indication: ANTIEMETIC SUPPORTIVE CARE
     Dates: start: 20081119, end: 20090508

REACTIONS (3)
  - ACNE [None]
  - RASH [None]
  - VISION BLURRED [None]
